FAERS Safety Report 22151044 (Version 6)
Quarter: 2023Q2

REPORT INFORMATION
  Report Type: Report from Study
  Country: US (occurrence: US)
  Receive Date: 20230329
  Receipt Date: 20230511
  Transmission Date: 20230722
  Serious: Yes (Other)
  Sender: FDA-Public Use
  Company Number: US-JNJFOC-20230355840

PATIENT
  Age: 44 Year
  Sex: Female

DRUGS (1)
  1. SPRAVATO [Suspect]
     Active Substance: ESKETAMINE
     Indication: Depression
     Dosage: ^56 MG, 4 TOTAL DOSES^
     Dates: start: 20230307, end: 20230316

REACTIONS (7)
  - Pulmonary oedema [Not Recovered/Not Resolved]
  - Seasonal allergy [Unknown]
  - Asthma [Unknown]
  - Poor quality sleep [Unknown]
  - Product use complaint [Unknown]
  - Oropharyngeal pain [Not Recovered/Not Resolved]
  - Depression [Unknown]

NARRATIVE: CASE EVENT DATE: 20230101
